FAERS Safety Report 13382034 (Version 1)
Quarter: 2017Q1

REPORT INFORMATION
  Report Type: Spontaneous
  Country: BR (occurrence: BR)
  Receive Date: 20170329
  Receipt Date: 20170329
  Transmission Date: 20170429
  Serious: Yes (Life-Threatening, Hospitalization, Other)
  Sender: FDA-Public Use
  Company Number: PHHY2017BR043449

PATIENT
  Sex: Female

DRUGS (1)
  1. DIASEC [Suspect]
     Active Substance: LOPERAMIDE HYDROCHLORIDE
     Indication: FREQUENT BOWEL MOVEMENTS
     Dosage: 2 DF, BID
     Route: 048
     Dates: start: 201702

REACTIONS (6)
  - Intestinal obstruction [Unknown]
  - Decreased appetite [Unknown]
  - Vomiting [Unknown]
  - Faeces hard [Unknown]
  - Feeling abnormal [Unknown]
  - Abdominal pain [Unknown]
